FAERS Safety Report 6184380-5 (Version None)
Quarter: 2009Q2

REPORT INFORMATION
  Report Type: 
  Country: None (occurrence: None)
  Receive Date: 20090508
  Receipt Date: 20090501
  Transmission Date: 20091009
  Serious: Yes (Hospitalization)
  Sender: FDA-Public Use
  Company Number: A0782846A

PATIENT
  Age: 63 Year
  Sex: Male
  Weight: 106.8 kg

DRUGS (11)
  1. AVANDIA [Suspect]
     Indication: DIABETES MELLITUS
     Dosage: 4MG TWICE PER DAY
     Route: 048
     Dates: start: 20000512, end: 20070901
  2. AVANDAMET [Suspect]
     Indication: DIABETES MELLITUS
     Route: 048
     Dates: start: 20050401, end: 20051001
  3. AVANDARYL [Suspect]
     Indication: DIABETES MELLITUS
     Route: 048
     Dates: start: 20020601, end: 20070212
  4. METFORMIN HCL [Concomitant]
  5. GLUCOTROL [Concomitant]
  6. UROCIT-K [Concomitant]
  7. ALLOPURINOL [Concomitant]
  8. LISINOPRIL [Concomitant]
  9. ZANTAC [Concomitant]
  10. POTASSIUM CITRATE [Concomitant]
  11. SODIUM BICARBONATE IN PLASTIC CONTAINER [Concomitant]

REACTIONS (4)
  - CORONARY ARTERY DISEASE [None]
  - HYPERLIPIDAEMIA [None]
  - MYOCARDIAL INFARCTION [None]
  - RADIUS FRACTURE [None]
